FAERS Safety Report 8959670 (Version 2)
Quarter: 2013Q1

REPORT INFORMATION
  Report Type: Spontaneous
  Country: US (occurrence: US)
  Receive Date: 20121211
  Receipt Date: 20130125
  Transmission Date: 20140127
  Serious: Yes (Hospitalization, Other)
  Sender: FDA-Public Use
  Company Number: US-BAXTER-2012BAX026106

PATIENT
  Age: 84 Year
  Sex: Male

DRUGS (1)
  1. DIANEAL LOW CALCIUM [Suspect]
     Indication: PERITONEAL DIALYSIS
     Route: 033
     Dates: end: 20121128

REACTIONS (5)
  - Rectal cancer [Recovered/Resolved]
  - Gastrointestinal haemorrhage [Recovered/Resolved]
  - Peritonitis [Recovered/Resolved]
  - Abscess rupture [Recovered/Resolved]
  - Postoperative abscess [Recovered/Resolved]
